FAERS Safety Report 4359532-7 (Version None)
Quarter: 2004Q2

REPORT INFORMATION
  Report Type: 
  Country: None (occurrence: None)
  Receive Date: 20040514
  Receipt Date: 20040514
  Transmission Date: 20050107
  Serious: Yes (Hospitalization)
  Sender: FDA-Public Use
  Company Number: None

PATIENT
  Age: 74 Year
  Sex: Male

DRUGS (11)
  1. CLONIDINE HCL [Suspect]
     Indication: HYPERTENSION
     Dosage: 0.1 MG BID
     Dates: start: 19950301
  2. GLYBURIDE [Suspect]
     Indication: DIABETES MELLITUS NON-INSULIN-DEPENDENT
     Dosage: 10 MG BID
     Dates: start: 19960701
  3. TERAZOSIN HCL [Suspect]
     Indication: HYPERTENSION
     Dosage: 5 MG QHS
     Dates: start: 19981001
  4. ACIPHEX [Concomitant]
  5. RANITIDINE [Concomitant]
  6. BACLOFEN [Concomitant]
  7. LISINOPRIL [Concomitant]
  8. METOPROLOL [Concomitant]
  9. FUROSEMIDE [Concomitant]
  10. SALSALATE [Concomitant]
  11. SERTRALINE [Concomitant]

REACTIONS (2)
  - ASTHENIA [None]
  - DIZZINESS [None]
